APPROVED DRUG PRODUCT: ORLYNVAH
Active Ingredient: PROBENECID; SULOPENEM ETZADROXIL
Strength: 500MG;500MG
Dosage Form/Route: TABLET;ORAL
Application: N213972 | Product #001
Applicant: ITERUM THERAPEUTICS US LTD
Approved: Oct 25, 2024 | RLD: Yes | RS: Yes | Type: RX

PATENTS:
Patent 12109197 | Expires: Apr 1, 2039
Patent 11554112 | Expires: Apr 1, 2039
Patent 11478428 | Expires: Dec 23, 2039
Patent 7795243 | Expires: Jun 3, 2029

EXCLUSIVITY:
Code: NCE | Date: Oct 25, 2029
Code: GAIN | Date: Oct 25, 2034